FAERS Safety Report 19827818 (Version 1)
Quarter: 2021Q3

REPORT INFORMATION
  Report Type: Spontaneous
  Country: US (occurrence: US)
  Receive Date: 20210914
  Receipt Date: 20210914
  Transmission Date: 20211014
  Serious: No
  Sender: FDA-Public Use
  Company Number: US-CIPLA LTD.-2020US05563

PATIENT

DRUGS (5)
  1. MELOXICAM. [Suspect]
     Active Substance: MELOXICAM
     Dosage: UNK, RESTARTED
     Route: 065
     Dates: start: 2020
  2. LYRICA [Concomitant]
     Active Substance: PREGABALIN
     Indication: FIBROMYALGIA
     Dosage: 25 MG, ONCE IN THE MORNING AND AT NIGHT
     Route: 048
     Dates: start: 2019
  3. CYMBALTA [Concomitant]
     Active Substance: DULOXETINE HYDROCHLORIDE
     Indication: BACK PAIN
     Dosage: 30 MG, ONCE IN THE MORNING AND EVENING
     Route: 048
  4. CYMBALTA [Concomitant]
     Active Substance: DULOXETINE HYDROCHLORIDE
     Indication: DEPRESSION
  5. MELOXICAM. [Suspect]
     Active Substance: MELOXICAM
     Indication: FIBROMYALGIA
     Dosage: 15 MG, ONCE A DAY
     Route: 048
     Dates: start: 201902

REACTIONS (3)
  - Drug ineffective for unapproved indication [Unknown]
  - Joint stiffness [Unknown]
  - Off label use [Unknown]

NARRATIVE: CASE EVENT DATE: 201902
